FAERS Safety Report 4980175-6 (Version None)
Quarter: 2006Q2

REPORT INFORMATION
  Report Type: 
  Country: None (occurrence: None)
  Receive Date: 20060424
  Receipt Date: 20060410
  Transmission Date: 20061013
  Serious: Yes (Other)
  Sender: FDA-Public Use
  Company Number: PHBS2006NO05327

PATIENT
  Age: 44 Year
  Sex: Male

DRUGS (3)
  1. LAMISIL [Suspect]
     Indication: NAIL TINEA
     Dosage: 250 MG, QD
     Route: 048
     Dates: start: 20060313, end: 20060321
  2. VOLTAREN OPHTHA [Concomitant]
     Dosage: UNK, UNK
     Route: 031
  3. SPERSADEX [Concomitant]
     Route: 031

REACTIONS (1)
  - IRIDOCYCLITIS [None]
